FAERS Safety Report 9826117 (Version 1)
Quarter: 2013Q4

REPORT INFORMATION
  Report Type: Spontaneous
  Country: US (occurrence: None)
  Receive Date: 20131104
  Receipt Date: 20131104
  Transmission Date: 20140711
  Serious: Yes (Other)
  Sender: FDA-Public Use
  Company Number: 1000046915

PATIENT
  Age: 70 Year
  Sex: Male

DRUGS (1)
  1. DALIRESP (ROFLUMILAST) [Suspect]

REACTIONS (3)
  - Dyspnoea [None]
  - Blood lactic acid increased [None]
  - Malaise [None]
